FAERS Safety Report 21652580 (Version 1)
Quarter: 2022Q4

REPORT INFORMATION
  Report Type: Spontaneous
  Country: US (occurrence: US)
  Receive Date: 20221128
  Receipt Date: 20221128
  Transmission Date: 20230112
  Serious: Yes (Disabling)
  Sender: FDA-Public Use
  Company Number: US-MYLANLABS-2022M1132388

PATIENT
  Age: 72 Year
  Sex: Female

DRUGS (2)
  1. MOXIFLOXACIN [Suspect]
     Active Substance: MOXIFLOXACIN
     Indication: Glaucoma surgery
     Dosage: UNK
  2. MITOMYCIN C [Suspect]
     Active Substance: MITOMYCIN
     Indication: Glaucoma surgery
     Dosage: 0.2 MILLILITER (CONCENTRATION OF 0.2 MG/ML INJECTION AT 0.2ML)
     Route: 057

REACTIONS (4)
  - Ocular toxicity [Unknown]
  - Iris atrophy [Unknown]
  - Iris transillumination defect [Unknown]
  - Off label use [Unknown]
